FAERS Safety Report 4796759-4 (Version None)
Quarter: 2005Q4

REPORT INFORMATION
  Report Type: 
  Country: None (occurrence: None)
  Receive Date: 20051007
  Receipt Date: 20050928
  Transmission Date: 20060501
  Serious: Yes (Hospitalization)
  Sender: FDA-Public Use
  Company Number: 2005135621

PATIENT
  Age: 68 Year
  Sex: Male

DRUGS (4)
  1. CARDENALIN (DOAZOSIN) [Suspect]
     Indication: ILL-DEFINED DISORDER
     Dosage: 0.5 MG DAILY, ORAL
     Route: 048
     Dates: start: 20050112
  2. LIPITOR [Suspect]
     Indication: ILL-DEFINED DISORDER
     Dosage: 5 MG DAILY, ORAL
     Route: 048
     Dates: start: 20020112
  3. LOSARTAN POTASSIUM [Suspect]
     Indication: ILL-DEFINED DISORDER
     Dosage: 25 MG DAILY, ORAL
     Route: 048
     Dates: start: 20050112
  4. CONIEL (BENIDIPINE HYDROCHLORIDE) [Suspect]
     Indication: ILL-DEFINED DISORDER
     Dosage: 2 MG DAILY, ORAL
     Route: 048
     Dates: start: 20050702

REACTIONS (2)
  - BLOOD CREATINE PHOSPHOKINASE INCREASED [None]
  - LIVER DISORDER [None]
